FAERS Safety Report 5265339-9 (Version None)
Quarter: 2007Q1

REPORT INFORMATION
  Report Type: 
  Country: None (occurrence: None)
  Receive Date: 20070314
  Receipt Date: 20070228
  Transmission Date: 20070707
  Serious: Yes (Hospitalization)
  Sender: FDA-Public Use
  Company Number: US-ELI_LILLY_AND_COMPANY-USA030638832

PATIENT
  Age: 19 Year
  Sex: Male
  Weight: 70 kg

DRUGS (8)
  1. STRATTERA [Suspect]
     Indication: ATTENTION DEFICIT/HYPERACTIVITY DISORDER
     Dosage: 1200 MG, OTHER
     Route: 048
  2. OLANZAPINE [Suspect]
     Indication: SEDATION
     Dosage: UNK, UNKNOWN
     Route: 048
  3. OXCARBAZEPINE [Concomitant]
     Dosage: 36000 MG, UNKNOWN
  4. QUETIAPINE FUMARATE [Concomitant]
     Dosage: 9000 MG, UNKNOWN
  5. PAROXETINE HCL [Concomitant]
     Dosage: 20 MG, DAILY (1/D)
  6. ALBUTEROL [Concomitant]
     Dosage: UNK, AS NEEDED
  7. MONTELUKAST SODIUM [Concomitant]
     Dosage: 20 MG, DAILY (1/D)
     Route: 048
  8. ATIVAN [Concomitant]
     Indication: SEDATION
     Dosage: UNK, UNKNOWN

REACTIONS (11)
  - ABNORMAL BEHAVIOUR [None]
  - AGGRESSION [None]
  - AGITATION [None]
  - CARDIAC MURMUR [None]
  - DEPRESSED LEVEL OF CONSCIOUSNESS [None]
  - ELECTROCARDIOGRAM QT PROLONGED [None]
  - HALLUCINATION, AUDITORY [None]
  - HALLUCINATION, VISUAL [None]
  - INTENTIONAL OVERDOSE [None]
  - SUICIDE ATTEMPT [None]
  - VOMITING [None]
